FAERS Safety Report 9168565 (Version 2)
Quarter: 2013Q2

REPORT INFORMATION
  Report Type: Spontaneous
  Country: US (occurrence: US)
  Receive Date: 20130318
  Receipt Date: 20130410
  Transmission Date: 20140414
  Serious: Yes (Other)
  Sender: FDA-Public Use
  Company Number: US-ALLERGAN-1218257US

PATIENT
  Age: 61 Year
  Sex: Female

DRUGS (4)
  1. LASTACAFT [Suspect]
     Indication: CONJUNCTIVITIS ALLERGIC
     Dosage: 2 GTT, QD
     Route: 047
     Dates: start: 20110806
  2. RESTASIS? [Concomitant]
     Indication: OCULAR SURFACE DISEASE
     Dosage: 2 GTT, BID
     Route: 047
  3. PRAVASTATIN [Concomitant]
     Indication: BLOOD CHOLESTEROL INCREASED
     Dosage: 40 MG, QD
     Route: 048
  4. CALCIUM [Concomitant]
     Indication: OSTEOPOROSIS
     Dosage: 675 MG, BID
     Route: 048

REACTIONS (7)
  - Dermatitis contact [Recovered/Resolved]
  - Conjunctivitis infective [Recovered/Resolved]
  - Punctate keratitis [Recovered/Resolved]
  - Erythema [Recovered/Resolved]
  - Eye discharge [Recovered/Resolved]
  - Eye allergy [Recovered/Resolved]
  - Eye pruritus [Recovered/Resolved]
